FAERS Safety Report 7662398-0 (Version None)
Quarter: 2011Q3

REPORT INFORMATION
  Report Type: 
  Country: None (occurrence: None)
  Receive Date: 20110805
  Receipt Date: 20101213
  Transmission Date: 20111222
  Serious: No
  Sender: FDA-Public Use
  Company Number: US-ABBOTT-10P-163-0691879-00

PATIENT
  Sex: Female
  Weight: 81.72 kg

DRUGS (2)
  1. NIASPAN [Suspect]
     Indication: BLOOD CHOLESTEROL INCREASED
     Dates: start: 20100601, end: 20101201
  2. EFFEXOR [Concomitant]
     Indication: DEPRESSION
     Dosage: UNKNOWN

REACTIONS (2)
  - FLUSHING [None]
  - PRURITUS [None]
